FAERS Safety Report 22275438 (Version 3)
Quarter: 2023Q2

REPORT INFORMATION
  Report Type: Report from Study
  Country: GB (occurrence: GB)
  Receive Date: 20230502
  Receipt Date: 20230524
  Transmission Date: 20230722
  Serious: Yes (Hospitalization)
  Sender: FDA-Public Use
  Company Number: GB-002147023-NVSC2023GB093551

PATIENT
  Sex: Female

DRUGS (2)
  1. KESIMPTA [Suspect]
     Active Substance: OFATUMUMAB
     Indication: Relapsing-remitting multiple sclerosis
     Dosage: 20 MG, QW (SKIP A WEEK ADN THEN ANOTHER DOSE THE WEEK AFTER. MAINTENANCE DOSE: ONCE A MONTH)
     Route: 058
     Dates: start: 20230419
  2. KESIMPTA [Suspect]
     Active Substance: OFATUMUMAB
     Dosage: 20 MG, QW (SKIP A WEEK ADN THEN ANOTHER DOSE THE WEEK AFTER. MAINTENANCE DOSE: ONCE A MONTH)
     Route: 058
     Dates: start: 20230426

REACTIONS (12)
  - Endometriosis [Unknown]
  - Pain [Unknown]
  - Influenza like illness [Recovered/Resolved]
  - Feeling hot [Recovered/Resolved]
  - Feeling of body temperature change [Recovered/Resolved]
  - Pyrexia [Recovered/Resolved]
  - Pain [Recovered/Resolved]
  - Urinary tract infection [Unknown]
  - Nausea [Recovered/Resolved]
  - Nasopharyngitis [Recovered/Resolved]
  - Arthralgia [Unknown]
  - Injection site pain [Unknown]

NARRATIVE: CASE EVENT DATE: 20230503
